FAERS Safety Report 9206620 (Version 1)
Quarter: 2013Q2

REPORT INFORMATION
  Report Type: Spontaneous
  Country: GB (occurrence: None)
  Receive Date: 20130401
  Receipt Date: 20130401
  Transmission Date: 20140414
  Serious: Yes (Other)
  Sender: FDA-Public Use
  Company Number: SYM-2013-02164

PATIENT
  Age: 23 Year
  Sex: Male

DRUGS (5)
  1. METRONIDAZOLE [Suspect]
     Indication: EPIDIDYMITIS
     Route: 048
     Dates: start: 20130301, end: 20130307
  2. DEXEDRINE SMITHKLINE + FRENCH (DEXAMFETAMINE SULFATE) [Concomitant]
  3. DOXYCYCLINE (DOXYCYCLINE) (DOXYCYCLINE) [Concomitant]
  4. CEFTRIAXONE (CEFTRIAXONE) (CEFTRIAXONE) [Concomitant]
  5. CIPROFLOXACIN (CIPROFLOXACIN) (CIPROFLOXACIN) [Concomitant]

REACTIONS (5)
  - Insomnia [None]
  - Depression [None]
  - Agitation [None]
  - Paranoia [None]
  - Urticaria [None]
